FAERS Safety Report 17119070 (Version 2)
Quarter: 2020Q2

REPORT INFORMATION
  Report Type: Spontaneous
  Country: US (occurrence: US)
  Receive Date: 20191206
  Receipt Date: 20200528
  Transmission Date: 20200713
  Serious: No
  Sender: FDA-Public Use
  Company Number: US-UCBSA-2017034529

PATIENT
  Sex: Female

DRUGS (3)
  1. ADVIL [Concomitant]
     Active Substance: IBUPROFEN
     Indication: PAIN
     Dosage: 600 MG, 4X/DAY (QID)
  2. FUROSEMIDE. [Concomitant]
     Active Substance: FUROSEMIDE
     Indication: PRODUCT USED FOR UNKNOWN INDICATION
     Dosage: 20 MG, AS NEEDED (PRN)
     Route: 048
  3. CIMZIA [Suspect]
     Active Substance: CERTOLIZUMAB PEGOL
     Indication: PRODUCT USED FOR UNKNOWN INDICATION
     Dosage: UNKNOWN DOSE

REACTIONS (16)
  - Dyspnoea [Unknown]
  - Depression [Unknown]
  - Myalgia [Unknown]
  - Headache [Unknown]
  - Fatigue [Unknown]
  - Haemorrhage [Unknown]
  - Malaise [Unknown]
  - Peripheral swelling [Unknown]
  - Foot deformity [Unknown]
  - Arthralgia [Unknown]
  - Contusion [Unknown]
  - Back pain [Unknown]
  - Nervousness [Unknown]
  - Arthritis [Unknown]
  - Rash [Unknown]
  - Blood pressure abnormal [Unknown]
